FAERS Safety Report 6465256-2 (Version None)
Quarter: 2009Q4

REPORT INFORMATION
  Report Type: 
  Country: None (occurrence: None)
  Receive Date: 20091201
  Receipt Date: 20091012
  Transmission Date: 20100525
  Serious: No
  Sender: FDA-Public Use
  Company Number: US-AMGEN-KDL182393

PATIENT
  Sex: Female

DRUGS (2)
  1. ENBREL [Suspect]
     Indication: RHEUMATOID ARTHRITIS
     Route: 058
     Dates: start: 20060201, end: 20070101
  2. ARAVA [Concomitant]
     Dates: start: 20051101

REACTIONS (8)
  - CHILLS [None]
  - FORMICATION [None]
  - INJECTION SITE DERMATITIS [None]
  - INJECTION SITE ERYTHEMA [None]
  - INJECTION SITE RASH [None]
  - INJECTION SITE REACTION [None]
  - INJECTION SITE SWELLING [None]
  - REACTION TO PRESERVATIVES [None]
